FAERS Safety Report 15830322 (Version 1)
Quarter: 2019Q1

REPORT INFORMATION
  Report Type: Spontaneous
  Country: US (occurrence: US)
  Receive Date: 20190115
  Receipt Date: 20190115
  Transmission Date: 20190417
  Serious: No
  Sender: FDA-Public Use
  Company Number: US-REGENERON PHARMACEUTICALS, INC.-2018-38878

PATIENT

DRUGS (3)
  1. EYLEA [Suspect]
     Active Substance: AFLIBERCEPT
     Indication: PRODUCT USED FOR UNKNOWN INDICATION
     Dosage: UNK,ONCE, LEFT EYE
     Dates: start: 201711, end: 201711
  2. EYLEA [Suspect]
     Active Substance: AFLIBERCEPT
     Dosage: UNK,RIGHT EYE,  LAST DOSE PRIOR TO EVENT
     Dates: start: 20180912, end: 20180912
  3. EYLEA [Suspect]
     Active Substance: AFLIBERCEPT
     Dosage: UNK, EVERY 5 WEEKS, RIGHT EYE

REACTIONS (4)
  - Eye pain [Unknown]
  - Eye irritation [Unknown]
  - Eye disorder [Unknown]
  - Vitreous floaters [Not Recovered/Not Resolved]

NARRATIVE: CASE EVENT DATE: 20180912
